FAERS Safety Report 15285670 (Version 1)
Quarter: 2018Q3

REPORT INFORMATION
  Report Type: Spontaneous
  Country: GR (occurrence: GR)
  Receive Date: 20180816
  Receipt Date: 20180816
  Transmission Date: 20181010
  Serious: Yes (Death, Other)
  Sender: FDA-Public Use
  Company Number: PHHY2018GR068185

PATIENT
  Age: 65 Year
  Sex: Male

DRUGS (6)
  1. TRIMETHOPRIM SULFAMETHOXAZOLE [Suspect]
     Active Substance: SULFAMETHOXAZOLE\TRIMETHOPRIM
     Indication: EVIDENCE BASED TREATMENT
     Dosage: UNK
     Route: 065
  2. DOXYCYCLINE MONOHYDRATE [Suspect]
     Active Substance: DOXYCYCLINE
     Indication: EVIDENCE BASED TREATMENT
     Dosage: UNK
     Route: 065
  3. PIPERACILLIN AND TAZOBACTAM [Suspect]
     Active Substance: PIPERACILLIN SODIUM\TAZOBACTAM SODIUM
     Indication: EVIDENCE BASED TREATMENT
     Dosage: UNK
     Route: 065
  4. AZITHROMYCIN ANHYDROUS. [Suspect]
     Active Substance: AZITHROMYCIN ANHYDROUS
     Indication: EVIDENCE BASED TREATMENT
     Dosage: UNK
     Route: 065
  5. MEROPENEM. [Suspect]
     Active Substance: MEROPENEM
     Indication: EVIDENCE BASED TREATMENT
     Dosage: UNK
     Route: 065
  6. VANCOMYCIN HYDROCHLORIDE. [Suspect]
     Active Substance: VANCOMYCIN HYDROCHLORIDE
     Indication: EVIDENCE BASED TREATMENT
     Dosage: UNK
     Route: 065

REACTIONS (3)
  - Death [Fatal]
  - Hepatic cirrhosis [Fatal]
  - Condition aggravated [Fatal]
